FAERS Safety Report 7393761-3 (Version None)
Quarter: 2011Q2

REPORT INFORMATION
  Report Type: 
  Country: None (occurrence: None)
  Receive Date: 20110405
  Receipt Date: 20110324
  Transmission Date: 20111010
  Serious: Yes (Other)
  Sender: FDA-Public Use
  Company Number: US-JNJFOC-20110311725

PATIENT
  Sex: Female

DRUGS (2)
  1. STELARA [Suspect]
     Indication: PSORIASIS
     Route: 058
  2. ALL OTHER THERAPEUTIC PRODUCT [Concomitant]
     Indication: PSORIASIS
     Route: 061

REACTIONS (4)
  - PNEUMONIA [None]
  - EAR INFECTION [None]
  - BRONCHITIS [None]
  - SINUSITIS [None]
